FAERS Safety Report 21406899 (Version 1)
Quarter: 2022Q4

REPORT INFORMATION
  Report Type: Spontaneous
  Country: US (occurrence: None)
  Receive Date: 20221004
  Receipt Date: 20221004
  Transmission Date: 20230112
  Serious: Yes (Hospitalization, Other)
  Sender: FDA-Public Use
  Company Number: US-Hikma Pharmaceuticals USA Inc.-US-H14001-22-02468

PATIENT
  Sex: Female

DRUGS (1)
  1. ONDANSETRON [Suspect]
     Active Substance: ONDANSETRON
     Indication: Surgery
     Dosage: TWO DOSES IN THE EMERGENCY ROOM
     Route: 042
     Dates: start: 20220714

REACTIONS (15)
  - Drug hypersensitivity [Unknown]
  - Cardiac disorder [Unknown]
  - Cardiac operation [Unknown]
  - Fluid retention [Unknown]
  - Arrhythmia [Unknown]
  - Myocardial injury [Unknown]
  - Swelling [Unknown]
  - Tendon rupture [Unknown]
  - Tendon pain [Unknown]
  - Skin fissures [Unknown]
  - Chest pain [Unknown]
  - Asthenia [Unknown]
  - Tremor [Unknown]
  - General symptom [Unknown]
  - Contraindicated product administered [Unknown]
